FAERS Safety Report 13158654 (Version 2)
Quarter: 2017Q1

REPORT INFORMATION
  Report Type: Spontaneous
  Country: JP (occurrence: JP)
  Receive Date: 20170127
  Receipt Date: 20170222
  Transmission Date: 20170428
  Serious: Yes (Hospitalization, Disabling)
  Sender: FDA-Public Use
  Company Number: JP-ELI_LILLY_AND_COMPANY-JP201701007978

PATIENT
  Age: 64 Year
  Sex: Male
  Weight: 50 kg

DRUGS (5)
  1. CYRAMZA [Suspect]
     Active Substance: RAMUCIRUMAB
     Indication: RECTAL CANCER STAGE IV
     Dosage: 460 MG, DAY1 PER 14 DAYS
     Route: 042
     Dates: start: 20161117, end: 20161215
  2. LEVOFOLINATE CALCIUM [Concomitant]
     Active Substance: LEVOLEUCOVORIN CALCIUM
     Indication: RECTAL CANCER STAGE IV
     Dosage: 300 MG, OTHER
     Route: 042
     Dates: start: 20161117, end: 20161215
  3. 5 FU [Concomitant]
     Active Substance: FLUOROURACIL
     Indication: RECTAL CANCER STAGE IV
     Dosage: 650 MG, DAY1 PER 14 DAYS
     Route: 042
     Dates: start: 20161117, end: 20161215
  4. 5 FU [Concomitant]
     Active Substance: FLUOROURACIL
     Dosage: 3800 MG, DAY1-DAY2 PER 14 DAYS
     Route: 042
     Dates: start: 20161117, end: 20161215
  5. IRINOTECAN [Concomitant]
     Active Substance: IRINOTECAN
     Indication: RECTAL CANCER STAGE IV
     Dosage: 240 MG, DAY1 PER 14 DAYS
     Route: 042
     Dates: start: 20161117, end: 20161215

REACTIONS (1)
  - Putamen haemorrhage [Recovered/Resolved with Sequelae]

NARRATIVE: CASE EVENT DATE: 20161229
